FAERS Safety Report 5151755-2 (Version None)
Quarter: 2006Q4

REPORT INFORMATION
  Report Type: 
  Country: None (occurrence: None)
  Receive Date: 20061108
  Receipt Date: 20061027
  Transmission Date: 20070319
  Serious: Yes (Other)
  Sender: FDA-Public Use
  Company Number: CHNY2006DE03071

PATIENT
  Sex: Female

DRUGS (1)
  1. NICOTINE [Suspect]
     Indication: SMOKING CESSATION THERAPY
     Dosage: 21 MG, ONCE/SINGLE, TRANSDERMAL
     Route: 062
     Dates: start: 20061026, end: 20061026

REACTIONS (4)
  - CARDIAC DISORDER [None]
  - DYSPNOEA [None]
  - HEADACHE [None]
  - PALPITATIONS [None]
